FAERS Safety Report 9471188 (Version 1)
Quarter: 2013Q3

REPORT INFORMATION
  Report Type: Spontaneous
  Country: GB (occurrence: GB)
  Receive Date: 20130822
  Receipt Date: 20130822
  Transmission Date: 20140515
  Serious: Yes (Death)
  Sender: FDA-Public Use
  Company Number: GB-ROXANE LABORATORIES, INC.-2013-RO-01373RO

PATIENT
  Age: 3 Month
  Sex: Male

DRUGS (1)
  1. METHADONE [Suspect]
     Indication: EXPOSURE DURING BREAST FEEDING
     Route: 063

REACTIONS (1)
  - Death [Fatal]
